FAERS Safety Report 6141519-5 (Version None)
Quarter: 2009Q2

REPORT INFORMATION
  Report Type: 
  Country: None (occurrence: None)
  Receive Date: 20090402
  Receipt Date: 20090330
  Transmission Date: 20091009
  Serious: No
  Sender: FDA-Public Use
  Company Number: US-B.I. PHARMACEUTICALS,INC./RIDGEFIELD-2009-BP-03866BP

PATIENT
  Age: 82 Year
  Sex: Female

DRUGS (8)
  1. ATROVENT HFA [Suspect]
     Indication: ASTHMA
     Dosage: 68MCG
     Route: 055
     Dates: end: 20090328
  2. ALBUTEROL [Concomitant]
     Indication: ASTHMA
  3. XLANTAN [Concomitant]
     Indication: GLAUCOMA
  4. CARTIA XT [Concomitant]
     Indication: HYPERTENSION
     Dosage: 240MG
  5. METFORMIN HCL [Concomitant]
     Indication: DIABETES MELLITUS
     Dosage: 500MG
  6. RYTHMOL [Concomitant]
     Indication: ATRIAL FIBRILLATION
  7. LIPITOR [Concomitant]
     Indication: BLOOD CHOLESTEROL INCREASED
  8. ASPIRIN [Concomitant]
     Indication: PROPHYLAXIS

REACTIONS (4)
  - COUGH [None]
  - INCORRECT DOSE ADMINISTERED [None]
  - LACRIMATION INCREASED [None]
  - VISION BLURRED [None]
